FAERS Safety Report 23273058 (Version 1)
Quarter: 2023Q4

REPORT INFORMATION
  Report Type: Spontaneous
  Country: US (occurrence: US)
  Receive Date: 20231207
  Receipt Date: 20231207
  Transmission Date: 20240110
  Serious: No
  Sender: FDA-Public Use
  Company Number: US-BRISTOL-MYERS SQUIBB COMPANY-2023-177138

PATIENT
  Age: 70 Year
  Sex: Female

DRUGS (9)
  1. REVLIMID [Suspect]
     Active Substance: LENALIDOMIDE
     Indication: Plasma cell myeloma
     Route: 048
     Dates: start: 20220428
  2. PYRIDOXINE [Concomitant]
     Active Substance: PYRIDOXINE
     Indication: Product used for unknown indication
     Dosage: N/M.
  3. MAGNESIUM [Concomitant]
     Active Substance: MAGNESIUM
     Indication: Product used for unknown indication
  4. VITAMIN C [Concomitant]
     Active Substance: ASCORBIC ACID
     Indication: Product used for unknown indication
  5. CLARITIN [Concomitant]
     Active Substance: LORATADINE
     Indication: Product used for unknown indication
  6. CALCIUM 600+D [CALCIUM;COLECALCIFEROL] [Concomitant]
     Indication: Product used for unknown indication
  7. TYLENOL [Concomitant]
     Active Substance: ACETAMINOPHEN
     Indication: Product used for unknown indication
  8. VITAMIN B12 [Concomitant]
     Active Substance: CYANOCOBALAMIN
     Indication: Product used for unknown indication
     Dosage: 50^S.
  9. ASPIRIN [Concomitant]
     Active Substance: ASPIRIN
     Indication: Product used for unknown indication
     Dosage: LOW DOSE D/F TABS.

REACTIONS (3)
  - Cough [Unknown]
  - Wheezing [Unknown]
  - Off label use [Unknown]

NARRATIVE: CASE EVENT DATE: 20231130
